FAERS Safety Report 18171121 (Version 1)
Quarter: 2020Q3

REPORT INFORMATION
  Report Type: Spontaneous
  Country: US (occurrence: US)
  Receive Date: 20200819
  Receipt Date: 20200819
  Transmission Date: 20201103
  Serious: No
  Sender: FDA-Public Use
  Company Number: US-OREXO US, INC.-ORE201910-000105

PATIENT
  Sex: Female

DRUGS (2)
  1. ZUBSOLV [Suspect]
     Active Substance: BUPRENORPHINE HYDROCHLORIDE\NALOXONE HYDROCHLORIDE
     Indication: DRUG DEPENDENCE
  2. VALIUM [Concomitant]
     Active Substance: DIAZEPAM
     Dosage: 2 MG

REACTIONS (4)
  - Feeling abnormal [Unknown]
  - Intentional product use issue [Unknown]
  - Haemorrhoids [Unknown]
  - Fatigue [Unknown]
